FAERS Safety Report 8058226-4 (Version None)
Quarter: 2012Q1

REPORT INFORMATION
  Report Type: 
  Country: None (occurrence: None)
  Receive Date: 20120120
  Receipt Date: 20120118
  Transmission Date: 20120608
  Serious: No
  Sender: FDA-Public Use
  Company Number: US-B.I. PHARMACEUTICALS,INC./RIDGEFIELD-2012-BP-01033BP

PATIENT
  Sex: Female

DRUGS (11)
  1. PRADAXA [Suspect]
     Indication: ATRIAL FIBRILLATION
     Dosage: 300 MG
     Route: 048
     Dates: start: 20110901, end: 20120101
  2. HYDROCHLOROTHIAZIDE [Concomitant]
     Indication: OEDEMA
     Dosage: 25 MG
     Route: 048
  3. LISINOPRIL [Concomitant]
     Indication: HYPERTENSION
  4. HYPOTHYROID PILL [Concomitant]
     Indication: HYPOTHYROIDISM
     Route: 048
  5. AMIODARONE HCL [Concomitant]
     Indication: HYPERTENSION
  6. METOPROLOL TARTRATE [Concomitant]
     Indication: HYPERTENSION
  7. MULTI-VITAMIN [Concomitant]
     Indication: SUPPLEMENTATION THERAPY
     Route: 048
  8. TRAMADOL HCL [Concomitant]
     Indication: PAIN
  9. CALCIUM [Concomitant]
     Indication: SUPPLEMENTATION THERAPY
     Route: 048
  10. PRADAXA [Suspect]
     Dosage: 150 MG
     Route: 048
  11. SPIRONOLACTONE [Concomitant]
     Indication: OEDEMA
     Dosage: 25 MG

REACTIONS (2)
  - POLLAKIURIA [None]
  - INCORRECT DOSE ADMINISTERED [None]
